FAERS Safety Report 13198716 (Version 1)
Quarter: 2017Q1

REPORT INFORMATION
  Report Type: Spontaneous
  Country: US (occurrence: US)
  Receive Date: 20170208
  Receipt Date: 20170208
  Transmission Date: 20170428
  Serious: No
  Sender: FDA-Public Use
  Company Number: US-WEST-WARD PHARMACEUTICALS CORP.-US-H14001-16-00729

PATIENT
  Age: 2 Year
  Sex: Male
  Weight: 14.07 kg

DRUGS (2)
  1. LIDOCAINE. [Concomitant]
     Active Substance: LIDOCAINE
     Indication: PRODUCT USED FOR UNKNOWN INDICATION
     Route: 065
     Dates: start: 20160302
  2. CEFTRIAXONE INJECTION USP [Suspect]
     Active Substance: CEFTRIAXONE SODIUM
     Indication: EAR INFECTION
     Route: 030
     Dates: start: 20160302

REACTIONS (2)
  - Expired product administered [Recovered/Resolved]
  - Product preparation error [None]

NARRATIVE: CASE EVENT DATE: 20160502
